FAERS Safety Report 6757721-5 (Version None)
Quarter: 2010Q2

REPORT INFORMATION
  Report Type: 
  Country: None (occurrence: None)
  Receive Date: 20100607
  Receipt Date: 20100528
  Transmission Date: 20101027
  Serious: Yes (Other)
  Sender: FDA-Public Use
  Company Number: US-SANOFI-AVENTIS-2010SA026744

PATIENT
  Age: 72 Year
  Sex: Male
  Weight: 83 kg

DRUGS (1)
  1. CARAC [Suspect]
     Indication: SKIN DISORDER
     Route: 061
     Dates: start: 20100330, end: 20100331

REACTIONS (4)
  - APNOEA [None]
  - FEELING ABNORMAL [None]
  - MALAISE [None]
  - MUSCULOSKELETAL CHEST PAIN [None]
